FAERS Safety Report 22146618 (Version 1)
Quarter: 2023Q1

REPORT INFORMATION
  Report Type: Spontaneous
  Country: US (occurrence: None)
  Receive Date: 20230327
  Receipt Date: 20230327
  Transmission Date: 20230418
  Serious: Yes (Life-Threatening)
  Sender: FDA-Public Use
  Company Number: None

PATIENT
  Age: 72 Year
  Sex: Female
  Weight: 82.3 kg

DRUGS (2)
  1. APIXABAN [Suspect]
     Active Substance: APIXABAN
     Indication: Atrial fibrillation
     Dosage: FREQUENCY : TWICE A DAY;?
     Route: 048
     Dates: start: 20221019, end: 20230325
  2. aspirin 81 mg po daily [Concomitant]

REACTIONS (8)
  - Abdominal pain [None]
  - Vomiting [None]
  - Melaena [None]
  - Hypotension [None]
  - Anaemia [None]
  - Confusional state [None]
  - Haemorrhagic cyst [None]
  - Computerised tomogram abdomen abnormal [None]

NARRATIVE: CASE EVENT DATE: 20230325
